FAERS Safety Report 23626180 (Version 2)
Quarter: 2024Q1

REPORT INFORMATION
  Report Type: Other
  Country: PT (occurrence: PT)
  Receive Date: 20240313
  Receipt Date: 20240314
  Transmission Date: 20240410
  Serious: Yes (Hospitalization)
  Sender: FDA-Public Use
  Company Number: PT-B.Braun Medical Inc.-2154323

PATIENT
  Age: 28 Year
  Sex: Female

DRUGS (3)
  1. CEFTRIAXONE SODIUM [Suspect]
     Active Substance: CEFTRIAXONE SODIUM
     Route: 042
  2. DICLOFENAC [Suspect]
     Active Substance: DICLOFENAC
  3. METHYLDOPA [Concomitant]
     Active Substance: METHYLDOPA

REACTIONS (2)
  - Drug reaction with eosinophilia and systemic symptoms [Recovering/Resolving]
  - Maternal exposure during delivery [Recovering/Resolving]
